FAERS Safety Report 6032815-0 (Version None)
Quarter: 2009Q1

REPORT INFORMATION
  Report Type: 
  Country: None (occurrence: None)
  Receive Date: 20090109
  Receipt Date: 20081229
  Transmission Date: 20090719
  Serious: Yes (Other)
  Sender: FDA-Public Use
  Company Number: DE-WYE-G01814308

PATIENT
  Sex: Male

DRUGS (6)
  1. TREVILOR RETARD [Suspect]
     Indication: DEPRESSION
     Route: 048
     Dates: start: 20071101, end: 20080101
  2. TREVILOR RETARD [Suspect]
     Indication: SOMATISATION DISORDER
     Route: 048
     Dates: start: 20080101, end: 20080101
  3. TREVILOR RETARD [Suspect]
     Route: 048
     Dates: start: 20080101, end: 20080801
  4. TREVILOR RETARD [Suspect]
     Route: 048
     Dates: start: 20080801, end: 20080901
  5. TREVILOR RETARD [Suspect]
     Route: 048
     Dates: start: 20080901, end: 20080101
  6. TREVILOR RETARD [Suspect]
     Dosage: TAPERING BY COUNTING PELLETS
     Route: 048
     Dates: start: 20080101, end: 20081225

REACTIONS (15)
  - ANXIETY [None]
  - APATHY [None]
  - CONFUSIONAL STATE [None]
  - DEPERSONALISATION [None]
  - DRUG EFFECT DECREASED [None]
  - DRUG WITHDRAWAL SYNDROME [None]
  - FATIGUE [None]
  - FEELING OF DESPAIR [None]
  - HEADACHE [None]
  - LETHARGY [None]
  - NIGHTMARE [None]
  - PARAESTHESIA [None]
  - RESTLESSNESS [None]
  - SLEEP DISORDER [None]
  - SUICIDAL IDEATION [None]
